FAERS Safety Report 21169442 (Version 1)
Quarter: 2022Q3

REPORT INFORMATION
  Report Type: Spontaneous
  Country: FR (occurrence: FR)
  Receive Date: 20220804
  Receipt Date: 20220804
  Transmission Date: 20221027
  Serious: Yes (Other)
  Sender: FDA-Public Use
  Company Number: None

PATIENT
  Age: 15 Year
  Sex: Male

DRUGS (3)
  1. TRAMADOL HYDROCHLORIDE [Suspect]
     Active Substance: TRAMADOL HYDROCHLORIDE
     Indication: Product used for unknown indication
     Dosage: 6 TABLETS OF TRAMADOL LP 200 MG IN A SINGLE DOSE,TRAMADOL (CHLORHYDRATE DE) , DURATION : 1 DAY, UNIT
     Dates: start: 20220623, end: 20220623
  2. CANNABIS SATIVA SUBSP. INDICA TOP [Suspect]
     Active Substance: CANNABIS SATIVA SUBSP. INDICA TOP
     Indication: Product used for unknown indication
     Dosage: THERAPY START DATE AND END DATE : NASK
  3. TRAMADOL HYDROCHLORIDE [Suspect]
     Active Substance: TRAMADOL HYDROCHLORIDE
     Indication: Product used for unknown indication
     Dosage: 20 DROPS IN A SINGLE DOSE , FORM STRENGTH : 100 MG/ML , DURATION : 1 DAY
     Dates: start: 20220623, end: 20220623

REACTIONS (5)
  - Loss of consciousness [Recovered/Resolved]
  - Seizure [Recovered/Resolved]
  - Drug abuse [Recovered/Resolved]
  - Malaise [Recovered/Resolved]
  - Amnesia [Recovering/Resolving]

NARRATIVE: CASE EVENT DATE: 20220623
